FAERS Safety Report 7494228-4 (Version None)
Quarter: 2011Q2

REPORT INFORMATION
  Report Type: 
  Country: None (occurrence: None)
  Receive Date: 20110520
  Receipt Date: 20110513
  Transmission Date: 20111010
  Serious: Yes (Other)
  Sender: FDA-Public Use
  Company Number: US-BRISTOL-MYERS SQUIBB COMPANY-15703226

PATIENT
  Age: 47 Year
  Sex: Male

DRUGS (7)
  1. ABILIFY [Suspect]
     Indication: MAJOR DEPRESSION
     Dosage: 2 +3RD DOSE ON: AUG2009 NO OF DOSES:2-3
     Route: 048
     Dates: start: 20081113
  2. METHADONE HCL [Suspect]
     Dosage: 1 DF: 5
  3. SERAX [Suspect]
     Dosage: 1 DF:10
  4. NEURONTIN [Suspect]
     Dosage: 1 DF: 1200 UNIT NOS
  5. ZANAFLEX [Suspect]
     Dosage: 1 DF: 4
  6. PRISTIQ [Suspect]
     Dosage: 1 DF: 100 UNIT NOS
  7. NORCO [Suspect]
     Dosage: 1 DF: 10

REACTIONS (3)
  - CONVULSION [None]
  - LOSS OF CONSCIOUSNESS [None]
  - CEREBROVASCULAR ACCIDENT [None]
